FAERS Safety Report 16989055 (Version 13)
Quarter: 2021Q2

REPORT INFORMATION
  Report Type: Spontaneous
  Country: DE (occurrence: DE)
  Receive Date: 20191104
  Receipt Date: 20210629
  Transmission Date: 20210716
  Serious: Yes (Hospitalization, Other)
  Sender: FDA-Public Use
  Company Number: NVSC2019DE022528

PATIENT
  Age: 59 Year
  Sex: Male
  Weight: 70 kg

DRUGS (15)
  1. DARZALEX [Suspect]
     Active Substance: DARATUMUMAB
     Indication: PLASMA CELL MYELOMA
     Dosage: UNK, CYCLIC (20 CYCLES)
     Route: 065
     Dates: start: 20170701, end: 20190525
  2. CIDOFOVIR. [Concomitant]
     Active Substance: CIDOFOVIR
     Indication: PLASMA CELL MYELOMA
  3. DEXAMETHASONE. [Suspect]
     Active Substance: DEXAMETHASONE
     Dosage: 4 MG
     Route: 065
     Dates: start: 20080801, end: 20190525
  4. CYCLOPHOSPHAMIDE. [Suspect]
     Active Substance: CYCLOPHOSPHAMIDE
     Indication: PLASMA CELL MYELOMA
     Dosage: UNK, CYCLIC (20 CYCLES)
     Route: 065
  5. CYCLOPHOSPHAMIDE. [Suspect]
     Active Substance: CYCLOPHOSPHAMIDE
     Dosage: 200 MG
     Route: 065
     Dates: start: 20130204, end: 20180601
  6. VELCADE [Suspect]
     Active Substance: BORTEZOMIB
     Indication: PLASMA CELL MYELOMA
     Dosage: UNK, CYCLIC (20 CYCLES)
     Route: 065
  7. POMALIDOMIDE [Suspect]
     Active Substance: POMALIDOMIDE
     Dosage: 4 MG (PHARMACEUTICAL DF 5)
     Route: 048
     Dates: start: 20141001, end: 20180615
  8. ELOTUZUMAB. [Suspect]
     Active Substance: ELOTUZUMAB
     Indication: PLASMA CELL MYELOMA
     Dosage: 30 MG/KG, QMO (10 MILLIGRAM/KILOGRAM)
     Route: 065
     Dates: start: 20190131, end: 20190521
  9. MIRTAZAPINE. [Concomitant]
     Active Substance: MIRTAZAPINE
     Indication: PROGRESSIVE MULTIFOCAL LEUKOENCEPHALOPATHY
     Dosage: UNK
     Route: 065
  10. POMALIDOMIDE [Suspect]
     Active Substance: POMALIDOMIDE
     Indication: PLASMA CELL MYELOMA
     Dosage: UNK, CYCLIC (20 CYCLES)
     Route: 065
  11. CARFILZOMIB [Suspect]
     Active Substance: CARFILZOMIB
     Indication: PLASMA CELL MYELOMA
     Dosage: UNK (PHARMACEUTICAL DF 120)
     Route: 042
  12. VELCADE [Suspect]
     Active Substance: BORTEZOMIB
     Dosage: 1.3 MG/M2 (PHARMACEUTICAL DF 120)
     Route: 065
     Dates: start: 20130204, end: 20190308
  13. DEXAMETHASONE. [Suspect]
     Active Substance: DEXAMETHASONE
     Indication: PLASMA CELL MYELOMA
     Dosage: UNK, CYCLIC (20 CYCLES)
     Route: 065
  14. CIDOFOVIR. [Concomitant]
     Active Substance: CIDOFOVIR
     Indication: PROGRESSIVE MULTIFOCAL LEUKOENCEPHALOPATHY
     Dosage: UNK
     Route: 065
  15. DARATUMUMAB [Suspect]
     Active Substance: DARATUMUMAB
     Indication: PLASMA CELL MYELOMA
     Dosage: UNK (PHARMACEUTICAL DF 124)
     Route: 065
     Dates: start: 20170501, end: 20190525

REACTIONS (18)
  - Anogenital warts [Unknown]
  - Hypoacusis [Unknown]
  - Seizure [Recovered/Resolved]
  - Cytomegalovirus infection [Not Recovered/Not Resolved]
  - Cytomegalovirus infection reactivation [Unknown]
  - Anorectal human papilloma virus infection [Unknown]
  - Papilloma viral infection [Unknown]
  - JC virus infection [Recovered/Resolved with Sequelae]
  - Product use in unapproved indication [Unknown]
  - Herpes virus infection [Unknown]
  - Respirovirus test positive [Unknown]
  - Progressive multifocal leukoencephalopathy [Recovered/Resolved]
  - Blindness [Unknown]
  - Metastasis [Unknown]
  - Infection reactivation [Recovered/Resolved with Sequelae]
  - Human polyomavirus infection [Unknown]
  - Blindness cortical [Unknown]
  - Immune reconstitution inflammatory syndrome [Recovered/Resolved with Sequelae]
